FAERS Safety Report 9354397 (Version 3)
Quarter: 2013Q3

REPORT INFORMATION
  Report Type: Spontaneous
  Country: CA (occurrence: CA)
  Receive Date: 20130618
  Receipt Date: 20130927
  Transmission Date: 20140515
  Serious: Yes (Life-Threatening, Other)
  Sender: FDA-Public Use
  Company Number: CA-009507513-1306CAN008083

PATIENT
  Age: 9 Month
  Sex: Male

DRUGS (1)
  1. HYDRASENSE NASAL ASPIRATOR PLUS [Suspect]
     Indication: PRODUCT USED FOR UNKNOWN INDICATION
     Dosage: UNK

REACTIONS (2)
  - Asphyxia [Unknown]
  - Product quality issue [Unknown]
